FAERS Safety Report 7086151-4 (Version None)
Quarter: 2010Q4

REPORT INFORMATION
  Report Type: 
  Country: None (occurrence: None)
  Receive Date: 20101028
  Receipt Date: 20101013
  Transmission Date: 20110411
  Serious: Yes (Hospitalization)
  Sender: FDA-Public Use
  Company Number: LOC-00782

PATIENT
  Age: 67 Year
  Sex: Male

DRUGS (2)
  1. LOCOID [Suspect]
     Dosage: 0.1 %, TOPICAL
     Route: 061
     Dates: start: 20100510
  2. PANOTILE (FLUDROCORTISONE ACETATE) [Suspect]
     Dates: start: 20100817

REACTIONS (10)
  - AFFECTIVE DISORDER [None]
  - ALCOHOL USE [None]
  - COMPUTERISED TOMOGRAM ABNORMAL [None]
  - DISINHIBITION [None]
  - HYPOMANIA [None]
  - LOGORRHOEA [None]
  - PSYCHOMOTOR HYPERACTIVITY [None]
  - SCAR [None]
  - SELF INJURIOUS BEHAVIOUR [None]
  - SLEEP DISORDER [None]
